FAERS Safety Report 8701063 (Version 2)
Quarter: 2012Q4

REPORT INFORMATION
  Report Type: 
  Country: US (occurrence: US)
  Receive Date: 20120802
  Receipt Date: 20120904
  Transmission Date: 20130627
  Serious: No
  Sender: FDA-Public Use
  Company Number: US-AMGEN-USASP2012044410

PATIENT
  Age: 45 Year
  Sex: Male

DRUGS (2)
  1. ENBREL [Suspect]
     Indication: PSORIATIC ARTHROPATHY
     Dosage: 50 mg, qwk
     Dates: start: 20030301
  2. MOBIC [Concomitant]
     Indication: ARTHRITIS
     Dosage: 15 mg, qd
     Route: 048
     Dates: start: 2003

REACTIONS (2)
  - Unevaluable event [Recovered/Resolved]
  - Bronchitis [Recovered/Resolved]
